FAERS Safety Report 23248238 (Version 4)
Quarter: 2024Q2

REPORT INFORMATION
  Report Type: Spontaneous
  Country: US (occurrence: US)
  Receive Date: 20231130
  Receipt Date: 20240422
  Transmission Date: 20240715
  Serious: Yes (Other)
  Sender: FDA-Public Use
  Company Number: US-BEH-2023165788

PATIENT
  Age: 60 Year
  Sex: Female

DRUGS (28)
  1. HAEGARDA [Suspect]
     Active Substance: HUMAN C1-ESTERASE INHIBITOR
     Indication: Hereditary angioedema
     Dosage: 5220 UNK, BIW (EVERY 3 TO 4 DAYS)
     Route: 058
     Dates: start: 20201229
  2. HAEGARDA [Suspect]
     Active Substance: HUMAN C1-ESTERASE INHIBITOR
     Indication: Prophylaxis
     Dosage: UNK, QW
     Route: 058
  3. HAEGARDA [Suspect]
     Active Substance: HUMAN C1-ESTERASE INHIBITOR
     Dosage: 4365 INTERNATIONAL UNIT, BIW (EVERY 3 TO 4 DAYS)
     Route: 058
     Dates: start: 20231129
  4. HAEGARDA [Suspect]
     Active Substance: HUMAN C1-ESTERASE INHIBITOR
     Dosage: 4365 INTERNATIONAL UNIT, BIW (EVERY 3 TO 4 DAYS)
     Route: 058
     Dates: start: 20201228
  5. HAEGARDA [Suspect]
     Active Substance: HUMAN C1-ESTERASE INHIBITOR
     Indication: Hereditary angioedema
     Dosage: 4365 INTERNATIONAL UNIT, BIW (EVERY 3 TO 4 DAYS)
     Route: 058
     Dates: start: 20231129
  6. HAEGARDA [Suspect]
     Active Substance: HUMAN C1-ESTERASE INHIBITOR
     Indication: Prophylaxis
     Dosage: 4365 INTERNATIONAL UNIT, BIW (EVERY 3 TO 4 DAYS)
     Route: 058
     Dates: start: 20201228
  7. ALBUTEROL;TRIAMCINOLONE [Concomitant]
  8. AMMONIUM LACTATE [Concomitant]
     Active Substance: AMMONIUM LACTATE
  9. CLOTRIMAZOLE [Concomitant]
     Active Substance: CLOTRIMAZOLE
  10. DILTIAZEM [Concomitant]
     Active Substance: DILTIAZEM
  11. ERYTHROMYCIN [Concomitant]
     Active Substance: ERYTHROMYCIN
  12. FAMOTIDINE [Concomitant]
     Active Substance: FAMOTIDINE
  13. FLUOCINOLONE ACETONIDE [Concomitant]
     Active Substance: FLUOCINOLONE ACETONIDE
  14. FLUTICASONE [Concomitant]
     Active Substance: FLUTICASONE
  15. ACETAMINOPHEN\HYDROCODONE [Concomitant]
     Active Substance: ACETAMINOPHEN\HYDROCODONE
  16. ICATIBANT [Concomitant]
     Active Substance: ICATIBANT ACETATE
  17. LIDOCAINE AND PRILOCAINE [Concomitant]
     Active Substance: LIDOCAINE\PRILOCAINE
  18. LIDOCAINE 5% EXTRA [Concomitant]
  19. LIDOCAINE [Concomitant]
     Active Substance: LIDOCAINE
  20. MICATIN [Concomitant]
     Active Substance: MICONAZOLE NITRATE
  21. NICOTINE [Concomitant]
     Active Substance: NICOTINE
  22. OMEPRAZOLE [Concomitant]
     Active Substance: OMEPRAZOLE
  23. SERTRALINE [Concomitant]
     Active Substance: SERTRALINE HYDROCHLORIDE
  24. STIOLTO RESPIMAT [Concomitant]
     Active Substance: OLODATEROL HYDROCHLORIDE\TIOTROPIUM BROMIDE MONOHYDRATE
  25. SUMATRIPTAN [Concomitant]
     Active Substance: SUMATRIPTAN
  26. TRAZODONE [Concomitant]
     Active Substance: TRAZODONE HYDROCHLORIDE
  27. VITAMIN C [Concomitant]
     Active Substance: ASCORBIC ACID
  28. EPINEPHRINE [Concomitant]
     Active Substance: EPINEPHRINE

REACTIONS (13)
  - Hereditary angioedema [Recovered/Resolved]
  - Hereditary angioedema [Not Recovered/Not Resolved]
  - Device issue [Unknown]
  - Product preparation issue [Unknown]
  - Infusion site erythema [Not Recovered/Not Resolved]
  - Infusion site swelling [Not Recovered/Not Resolved]
  - Flushing [Not Recovered/Not Resolved]
  - Headache [Not Recovered/Not Resolved]
  - Inappropriate schedule of product administration [Not Recovered/Not Resolved]
  - Influenza [Not Recovered/Not Resolved]
  - Hereditary angioedema [Not Recovered/Not Resolved]
  - Abdominal pain upper [Not Recovered/Not Resolved]
  - Abdominal pain [Unknown]

NARRATIVE: CASE EVENT DATE: 20231101
